FAERS Safety Report 6454642 (Version 7)
Quarter: 2020Q3

REPORT INFORMATION
  Report Type: Report from Study
  Country: US (occurrence: US)
  Receive Date: 20071030
  Receipt Date: 20121211
  Transmission Date: 20201105
  Serious: Yes (Death, Hospitalization)
  Sender: FDA-Public Use
  Company Number: US-JNJFOC-20071005407

PATIENT
  Age: 41 Year
  Sex: Male
  Weight: 75.75 kg

DRUGS (22)
  1. ZOLOFT [Concomitant]
     Active Substance: SERTRALINE HYDROCHLORIDE
     Route: 065
  2. VALTREX [Concomitant]
     Active Substance: VALACYCLOVIR HYDROCHLORIDE
     Route: 065
  3. COZAAR [Concomitant]
     Active Substance: LOSARTAN POTASSIUM
     Route: 065
  4. PROTONIX [Concomitant]
     Active Substance: PANTOPRAZOLE SODIUM
     Route: 065
  5. PREZISTA [Suspect]
     Active Substance: DARUNAVIR ETHANOLATE
     Indication: HIV INFECTION
     Route: 048
     Dates: start: 20070730, end: 20071024
  6. NORVIR [Concomitant]
     Active Substance: RITONAVIR
     Indication: HIV INFECTION
     Route: 048
     Dates: start: 20070730, end: 20071024
  7. PRAVASTATIN. [Concomitant]
     Active Substance: PRAVASTATIN
     Route: 065
  8. ACYCLOVIR. [Concomitant]
     Active Substance: ACYCLOVIR
     Route: 065
  9. LASIX [Concomitant]
     Active Substance: FUROSEMIDE
     Route: 065
  10. NIFEDIAC CC [Concomitant]
     Active Substance: NIFEDIPINE
     Route: 065
  11. EPIVIR [Concomitant]
     Active Substance: LAMIVUDINE
     Dosage: STARTED PRE TRIAL
     Route: 065
  12. ISENTRESS [Concomitant]
     Active Substance: RALTEGRAVIR POTASSIUM
     Route: 065
  13. INDOMETHACIN. [Concomitant]
     Active Substance: INDOMETHACIN
     Route: 065
  14. PIROXICAM. [Concomitant]
     Active Substance: PIROXICAM
     Route: 065
  15. TMC125 [Suspect]
     Active Substance: ETRAVIRINE
     Indication: HIV INFECTION
     Route: 048
     Dates: start: 20070730, end: 20071024
  16. EFFEXOR XR [Concomitant]
     Active Substance: VENLAFAXINE HYDROCHLORIDE
     Indication: PRODUCT USED FOR UNKNOWN INDICATION
     Dosage: STARTED PRE TRIAL
     Route: 065
  17. SEROQUEL [Concomitant]
     Active Substance: QUETIAPINE FUMARATE
     Route: 065
  18. TMC125 [Suspect]
     Active Substance: ETRAVIRINE
     Route: 048
  19. MK?0518 [Concomitant]
     Active Substance: RALTEGRAVIR POTASSIUM
     Indication: HIV INFECTION
     Route: 048
     Dates: start: 20070730, end: 20071024
  20. AMBIEN [Concomitant]
     Active Substance: ZOLPIDEM TARTRATE
     Route: 065
  21. KLOR CON [Concomitant]
     Route: 065
  22. PLAQUENIL [Concomitant]
     Active Substance: HYDROXYCHLOROQUINE SULFATE
     Route: 065

REACTIONS (5)
  - Nausea [Recovered/Resolved]
  - Hepatitis B reactivation [Fatal]
  - Adrenal insufficiency [Recovered/Resolved with Sequelae]
  - Vomiting [Recovered/Resolved]
  - Hypoglycaemia [Recovered/Resolved]

NARRATIVE: CASE EVENT DATE: 20071003
